FAERS Safety Report 10259877 (Version 1)
Quarter: 2014Q2

REPORT INFORMATION
  Report Type: Spontaneous
  Country: JP (occurrence: JP)
  Receive Date: 20140625
  Receipt Date: 20140625
  Transmission Date: 20141212
  Serious: Yes (Hospitalization)
  Sender: FDA-Public Use
  Company Number: JP-GLAXOSMITHKLINE-B0996538A

PATIENT
  Age: 22 Year
  Sex: Female
  Weight: 50 kg

DRUGS (5)
  1. LAMICTAL [Suspect]
     Indication: BIPOLAR I DISORDER
     Route: 048
     Dates: start: 20140320, end: 20140416
  2. LIMAS [Concomitant]
     Indication: BIPOLAR I DISORDER
     Route: 048
     Dates: start: 20140320, end: 20140416
  3. LUDIOMIL [Concomitant]
     Indication: BIPOLAR I DISORDER
     Route: 048
     Dates: start: 20140320, end: 20140416
  4. FLUVOXAMINE MALEATE [Concomitant]
     Indication: BIPOLAR I DISORDER
     Route: 048
     Dates: start: 20140320, end: 20140416
  5. MOSAPRIDE CITRATE [Concomitant]
     Indication: BIPOLAR I DISORDER
     Route: 048
     Dates: start: 20140320, end: 20140416

REACTIONS (7)
  - Liver disorder [Recovering/Resolving]
  - Drug eruption [Recovered/Resolved]
  - Rash [Recovered/Resolved]
  - Pyrexia [Unknown]
  - Erythema [Unknown]
  - Rash [Unknown]
  - Haemangioma of liver [Unknown]
